FAERS Safety Report 16326772 (Version 1)
Quarter: 2019Q2

REPORT INFORMATION
  Report Type: Spontaneous
  Country: CA (occurrence: CA)
  Receive Date: 20190517
  Receipt Date: 20190517
  Transmission Date: 20190711
  Serious: Yes (Other)
  Sender: FDA-Public Use
  Company Number: CA-TEVA-2019-CA-1050413

PATIENT
  Age: 50 Year
  Sex: Female

DRUGS (1)
  1. CLINDAMYCIN. [Suspect]
     Active Substance: CLINDAMYCIN
     Indication: SKIN INFECTION
     Dosage: 1200 MILLIGRAM DAILY;
     Route: 048

REACTIONS (3)
  - Odynophagia [Unknown]
  - Dyspepsia [Unknown]
  - Oropharyngeal pain [Unknown]
